FAERS Safety Report 11689236 (Version 1)
Quarter: 2015Q4

REPORT INFORMATION
  Report Type: Spontaneous
  Country: US (occurrence: None)
  Receive Date: 20151030
  Receipt Date: 20151030
  Transmission Date: 20160304
  Serious: Yes (Other)
  Sender: FDA-Public Use
  Company Number: None

PATIENT
  Age: 47 Year
  Sex: Female
  Weight: 68.04 kg

DRUGS (9)
  1. NALTREXONE [Concomitant]
     Active Substance: NALTREXONE
  2. BUPROPION XL [Suspect]
     Active Substance: BUPROPION
     Indication: DEPRESSION
     Route: 048
     Dates: end: 20150822
  3. LORATIDINE [Concomitant]
     Active Substance: LORATADINE
  4. ESTRADILE [Concomitant]
  5. WELLBUTRION [Concomitant]
  6. IMMUNION [Concomitant]
  7. BLACK COHOSH [Concomitant]
     Active Substance: BLACK COHOSH
  8. NAPROXINE [Concomitant]
  9. PROGEST [Concomitant]

REACTIONS (4)
  - Depression [None]
  - Drug ineffective [None]
  - Suicidal ideation [None]
  - Drug dose omission [None]
